FAERS Safety Report 7096900-7 (Version None)
Quarter: 2010Q4

REPORT INFORMATION
  Report Type: 
  Country: None (occurrence: None)
  Receive Date: 20101111
  Receipt Date: 20100216
  Transmission Date: 20110411
  Serious: No
  Sender: FDA-Public Use
  Company Number: US-KINGPHARMUSA00001-K201000177

PATIENT
  Age: 44 Year
  Sex: Male

DRUGS (2)
  1. FLECTOR [Suspect]
     Indication: BACK PAIN
     Dosage: 1 PATCH, TWICE
     Route: 061
     Dates: start: 20091201, end: 20091201
  2. FLECTOR [Suspect]
     Indication: MUSCLE STRAIN

REACTIONS (3)
  - ABDOMINAL DISCOMFORT [None]
  - APPLICATION SITE COLD FEELING [None]
  - GASTROINTESTINAL PAIN [None]
